FAERS Safety Report 9214694 (Version 1)
Quarter: 2013Q2

REPORT INFORMATION
  Report Type: Spontaneous
  Country: US (occurrence: US)
  Receive Date: 20130405
  Receipt Date: 20130405
  Transmission Date: 20140414
  Serious: No
  Sender: FDA-Public Use
  Company Number: US-009507513-1304USA001750

PATIENT
  Sex: Female

DRUGS (5)
  1. COSOPT PF [Suspect]
     Indication: GLAUCOMA
     Dosage: 1 DROP EACH EYE TWICE A DAY,  BID
     Route: 031
     Dates: start: 201301
  2. DORZOLAMIDE HYDROCHLORIDE (+) TIMOLOL MALEATE [Suspect]
  3. LUMIGAN [Concomitant]
     Dosage: UNK
  4. NATURAL TEARS (HYPROMELLOSE (+) SODIUM CHLORIDE) [Concomitant]
     Dosage: UNK
  5. LEVOTHYROXINE SODIUM [Concomitant]
     Dosage: UNK

REACTIONS (6)
  - Injury corneal [Recovering/Resolving]
  - Dry eye [Not Recovered/Not Resolved]
  - Product quality issue [Unknown]
  - Injury corneal [Not Recovered/Not Resolved]
  - Eye pain [Not Recovered/Not Resolved]
  - Eye pain [Unknown]
